FAERS Safety Report 7639780-0 (Version None)
Quarter: 2011Q3

REPORT INFORMATION
  Report Type: 
  Country: None (occurrence: None)
  Receive Date: 20110727
  Receipt Date: 20110721
  Transmission Date: 20111222
  Serious: Yes (Hospitalization)
  Sender: FDA-Public Use
  Company Number: PHHO2011US12669

PATIENT
  Sex: Male
  Weight: 75.8 kg

DRUGS (12)
  1. TASIGNA [Suspect]
     Indication: CHRONIC MYELOID LEUKAEMIA
     Dosage: 300 MG, BID
     Dates: start: 20080808
  2. BENAZEPRIL HYDROCHLORIDE [Concomitant]
     Indication: HYPERTENSION
     Dosage: 40 MG, QD
     Dates: start: 19930101
  3. METOPROLOL TARTRATE [Concomitant]
     Dosage: 150 MG, BID
     Dates: start: 20110629
  4. NIASPAN [Concomitant]
     Indication: HYPERCHOLESTEROLAEMIA
     Dosage: 1 G, QD
     Dates: start: 20101001
  5. GLIMEPIRIDE [Concomitant]
     Indication: DIABETES MELLITUS
     Dosage: 4 MG, QD
     Dates: start: 20020508
  6. NORVASC [Concomitant]
     Indication: HYPERTENSION
     Dosage: 5 MG, QD
     Dates: start: 19930101
  7. ASPIRIN [Concomitant]
     Indication: PROPHYLAXIS
     Dosage: 325 MG, QD
     Dates: start: 19930101
  8. METOPROLOL TARTRATE [Concomitant]
     Indication: CORONARY ARTERY DISEASE
     Dosage: 100 MG, BID
     Dates: start: 20020101, end: 20110629
  9. HUMALOG [Concomitant]
     Indication: DIABETES MELLITUS
     Dosage: 4 U, TID
     Dates: start: 20100604
  10. ZETIA [Concomitant]
     Indication: HYPERCHOLESTEROLAEMIA
     Dosage: 10 MG, QD
     Dates: start: 20061012
  11. METFORMIN HCL [Concomitant]
     Indication: DIABETES MELLITUS
     Dosage: 850 MG, BID
     Dates: start: 19930101
  12. NITROGLYCERIN [Concomitant]
     Indication: MUSCULOSKELETAL PAIN
     Dosage: 0.4 MG, PRN
     Dates: start: 20030606

REACTIONS (1)
  - CORONARY ARTERY DISEASE [None]
